FAERS Safety Report 5405172-8 (Version None)
Quarter: 2007Q3

REPORT INFORMATION
  Report Type: 
  Country: None (occurrence: None)
  Receive Date: 20070803
  Receipt Date: 20070725
  Transmission Date: 20080115
  Serious: Yes (Hospitalization)
  Sender: FDA-Public Use
  Company Number: BR-ABBOTT-07P-020-0375971-00

PATIENT
  Age: 60 Year
  Sex: Female
  Weight: 80 kg

DRUGS (9)
  1. HUMIRA [Suspect]
     Indication: RHEUMATOID ARTHRITIS
     Route: 058
     Dates: start: 20040201
  2. UNKNOWN MEDICATION [Concomitant]
     Indication: SEDATIVE THERAPY
  3. UNKNOWN MEDICATION [Concomitant]
     Indication: MUSCLE RELAXANT THERAPY
  4. UNKNOWN MEDICATION [Concomitant]
     Indication: ANTIBIOTIC PROPHYLAXIS
  5. UNKNOWN MEDICATION [Concomitant]
     Indication: PAIN PROPHYLAXIS
  6. METHOTREXATE [Concomitant]
     Indication: RHEUMATOID ARTHRITIS
     Route: 048
     Dates: start: 20020101
  7. MARISTRAL FORMULA [Concomitant]
     Indication: RHEUMATOID ARTHRITIS
     Dates: start: 20020101
  8. ENALAPRIL MALEATE [Concomitant]
     Indication: HYPERTENSION
     Route: 048
  9. METFORMIN HCL [Concomitant]
     Indication: DIABETES MELLITUS
     Route: 048

REACTIONS (4)
  - ASTHMATIC CRISIS [None]
  - BONE EROSION [None]
  - NECK PAIN [None]
  - PNEUMONIA [None]
